FAERS Safety Report 4407168-1 (Version None)
Quarter: 2004Q3

REPORT INFORMATION
  Report Type: 
  Country: None (occurrence: None)
  Receive Date: 20040723
  Receipt Date: 20040723
  Transmission Date: 20050211
  Serious: Yes (Other)
  Sender: FDA-Public Use
  Company Number: None

PATIENT
  Age: 82 Year
  Sex: Male
  Weight: 93 kg

DRUGS (25)
  1. OMEPRAZOLE [Suspect]
  2. ASPIRIN [Concomitant]
  3. ASCORBIC ACID [Concomitant]
  4. DOCUSATE NA [Concomitant]
  5. VITAMIN E [Concomitant]
  6. SENNOSIDES [Concomitant]
  7. FUROSEMIDE [Concomitant]
  8. ATENOLOL [Concomitant]
  9. LANSOPRAZOLE [Concomitant]
  10. NITROGLYCERIN [Concomitant]
  11. LOVASTATIN [Concomitant]
  12. FLUOXETINE HCL [Concomitant]
  13. GABAPENTIN [Concomitant]
  14. HYDROXYZINE PAMOATE [Concomitant]
  15. DILANTIN [Concomitant]
  16. FOLIC ACID [Concomitant]
  17. POTASSIUM CHLORIDE [Concomitant]
  18. COUMADIN [Concomitant]
  19. SPIRONOLACTONE [Concomitant]
  20. CLONAZEPAM [Concomitant]
  21. CELECOXIB [Concomitant]
  22. PSYLLIUM [Concomitant]
  23. CLONAZEPAM [Concomitant]
  24. PRIMIDONE [Concomitant]
  25. TROLAMINE SALICYLATE [Concomitant]

REACTIONS (1)
  - DIARRHOEA [None]
